FAERS Safety Report 6795182-0 (Version None)
Quarter: 2010Q2

REPORT INFORMATION
  Report Type: 
  Country: None (occurrence: None)
  Receive Date: 20100624
  Receipt Date: 20100624
  Transmission Date: 20101027
  Serious: Yes (Life-Threatening)
  Sender: FDA-Public Use
  Company Number: None

PATIENT
  Age: 36 Year
  Sex: Female
  Weight: 62.7 kg

DRUGS (3)
  1. TOPIRAMATE [Suspect]
     Indication: MIGRAINE
     Dosage: 25 MG 1 TABLET AT BEDTIME ORAL
     Route: 048
     Dates: start: 20100609, end: 20100610
  2. PROPRANOLOL [Concomitant]
  3. ACETAMINOPHEN W/ CODEINE NO. 3 [Concomitant]

REACTIONS (3)
  - MOOD ALTERED [None]
  - SOMNOLENCE [None]
  - SUICIDAL IDEATION [None]
